FAERS Safety Report 5024750-1 (Version None)
Quarter: 2006Q2

REPORT INFORMATION
  Report Type: 
  Country: None (occurrence: None)
  Receive Date: 20060426
  Receipt Date: 20060215
  Transmission Date: 20061013
  Serious: Yes (Other)
  Sender: FDA-Public Use
  Company Number: 2006025135

PATIENT
  Age: 81 Year
  Sex: Female

DRUGS (15)
  1. LYRICA [Suspect]
     Indication: FIBROMYALGIA
     Dosage: 150 MG (50 MG, 3 IN 1 D), UNKNOWN
     Dates: start: 20051122, end: 20051201
  2. MEDROL [Suspect]
     Indication: ILL-DEFINED DISORDER
     Dates: start: 20060101
  3. ARTHROTEC [Suspect]
     Indication: ILL-DEFINED DISORDER
     Dates: start: 20051214
  4. ALPRAZOLAM [Suspect]
     Indication: ILL-DEFINED DISORDER
     Dosage: (0.25 MG)
     Dates: start: 20051218
  5. PREDNISONE TAB [Suspect]
     Indication: ILL-DEFINED DISORDER
     Dosage: (5 MG)
     Dates: start: 20060121
  6. MONTELUKAS (MONTELUKAST) [Suspect]
     Indication: ILL-DEFINED DISORDER
     Dosage: (10 MG)
     Dates: start: 20051218
  7. PREMARIN [Concomitant]
  8. BIAXIN [Concomitant]
  9. NEXIUM [Concomitant]
  10. OXYCONTIN [Concomitant]
  11. HYDROCODONE BITARTRATE [Concomitant]
  12. ACTONEL [Concomitant]
  13. AMBIEN [Concomitant]
  14. EFFEXOR-XR (VENLAFACINE HYDROCHLORIDE) [Concomitant]
  15. TIZANIDINE HCL [Concomitant]

REACTIONS (4)
  - DISORIENTATION [None]
  - MOVEMENT DISORDER [None]
  - PAIN [None]
  - UNEVALUABLE EVENT [None]
